FAERS Safety Report 6318388-3 (Version None)
Quarter: 2009Q3

REPORT INFORMATION
  Report Type: 
  Country: None (occurrence: None)
  Receive Date: 20090820
  Receipt Date: 20090820
  Transmission Date: 20100115
  Serious: Yes (Hospitalization)
  Sender: FDA-Public Use
  Company Number: None

PATIENT
  Sex: Male
  Weight: 137 kg

DRUGS (5)
  1. MEMANTINE HCL [Suspect]
     Dosage: 770 MG
  2. DIFLUCAN [Concomitant]
  3. FOLIC ACID [Concomitant]
  4. NORTRIPTYLINE HCL [Concomitant]
  5. PROTONIX [Concomitant]

REACTIONS (4)
  - DEHYDRATION [None]
  - HEADACHE [None]
  - ORTHOSTATIC HYPOTENSION [None]
  - PYREXIA [None]
